FAERS Safety Report 6695064-9 (Version None)
Quarter: 2010Q2

REPORT INFORMATION
  Report Type: 
  Country: None (occurrence: None)
  Receive Date: 20100423
  Receipt Date: 20100414
  Transmission Date: 20101027
  Serious: Yes (Hospitalization)
  Sender: FDA-Public Use
  Company Number: PHHY2010DE23448

PATIENT
  Sex: Female
  Weight: 63 kg

DRUGS (2)
  1. CGS 20267 T30748+ [Suspect]
     Indication: BREAST CANCER
     Dosage: 2.5 MG, QD
     Route: 048
     Dates: start: 20090505
  2. ENALAPRIL MALEATE [Concomitant]
     Dosage: 20 MG
     Dates: start: 20000101

REACTIONS (3)
  - BILE DUCT STONE [None]
  - CHOLECYSTECTOMY [None]
  - CHOLELITHIASIS [None]
